FAERS Safety Report 24668923 (Version 1)
Quarter: 2024Q4

REPORT INFORMATION
  Report Type: Spontaneous
  Country: BG (occurrence: BG)
  Receive Date: 20241127
  Receipt Date: 20241127
  Transmission Date: 20250115
  Serious: Yes (Death)
  Sender: NOVARTIS
  Company Number: BG-002147023-NVSC2024BG226553

PATIENT
  Age: 66 Year
  Sex: Male

DRUGS (1)
  1. ENTRESTO [Suspect]
     Active Substance: SACUBITRIL\VALSARTAN
     Indication: Cardiac failure
     Dosage: UNK, BID (24/26 MG)
     Route: 048
     Dates: start: 2021, end: 2024

REACTIONS (1)
  - Death [Fatal]

NARRATIVE: CASE EVENT DATE: 20240901
